FAERS Safety Report 9749888 (Version 2)
Quarter: 2014Q1

REPORT INFORMATION
  Report Type: Report from Study
  Country: CA (occurrence: CA)
  Receive Date: 20131212
  Receipt Date: 20140103
  Transmission Date: 20141002
  Serious: Yes (Other)
  Sender: FDA-Public Use
  Company Number: CA-JNJFOC-20131204133

PATIENT
  Age: 42 Year
  Sex: Female
  Weight: 86.18 kg

DRUGS (5)
  1. REMICADE [Suspect]
     Indication: CROHN^S DISEASE
     Route: 042
  2. REMICADE [Suspect]
     Indication: CROHN^S DISEASE
     Route: 042
     Dates: start: 20131107
  3. REMICADE [Suspect]
     Indication: CROHN^S DISEASE
     Route: 042
     Dates: start: 20130116, end: 2013
  4. IMURAN [Concomitant]
     Route: 065
  5. MTX [Concomitant]
     Route: 065

REACTIONS (11)
  - Eye infection [Recovered/Resolved]
  - Diplopia [Unknown]
  - Vulvovaginal pruritus [Unknown]
  - Dysuria [Not Recovered/Not Resolved]
  - Abdominal pain [Recovered/Resolved]
  - Contusion [Unknown]
  - Decreased appetite [Unknown]
  - Pain [Unknown]
  - Fatigue [Recovered/Resolved]
  - Dysstasia [Unknown]
  - Abasia [Unknown]
